FAERS Safety Report 10616568 (Version 1)
Quarter: 2014Q4

REPORT INFORMATION
  Report Type: Spontaneous
  Country: US (occurrence: US)
  Receive Date: 20141201
  Receipt Date: 20141201
  Transmission Date: 20150529
  Serious: Yes (Other)
  Sender: FDA-Public Use
  Company Number: US-PFIZER INC-2014319631

PATIENT
  Age: 49 Year
  Sex: Female
  Weight: 80 kg

DRUGS (4)
  1. NEURONTIN [Suspect]
     Active Substance: GABAPENTIN
     Indication: RESTLESS LEGS SYNDROME
     Dosage: 600 MG, 3X/DAY
     Route: 048
  2. NEURONTIN [Suspect]
     Active Substance: GABAPENTIN
     Indication: NEUROPATHY PERIPHERAL
     Dosage: 300MG, 4X/DAY A COUPLE OF YEARS AGO
  3. EXCEDRIN MIGRAINE [Concomitant]
     Active Substance: ACETAMINOPHEN\ASPIRIN\CAFFEINE
     Dosage: 250 MG, UNK
     Route: 048
  4. TUSSIN SYRUP [Concomitant]
     Dosage: 1 TABLESPOON, EVERY NIGHT

REACTIONS (13)
  - Weight increased [Unknown]
  - Dizziness [Unknown]
  - Blood pressure increased [Unknown]
  - Benign neoplasm of cervix uteri [Unknown]
  - Back pain [Not Recovered/Not Resolved]
  - Decreased appetite [Unknown]
  - Stress [Unknown]
  - Pain in extremity [Not Recovered/Not Resolved]
  - Intervertebral disc degeneration [Unknown]
  - Expired product administered [Unknown]
  - Intentional product misuse [Not Recovered/Not Resolved]
  - Medical device complication [Unknown]
  - Drug ineffective for unapproved indication [Not Recovered/Not Resolved]

NARRATIVE: CASE EVENT DATE: 2012
